FAERS Safety Report 23959713 (Version 1)
Quarter: 2024Q2

REPORT INFORMATION
  Report Type: Report from Study
  Country: CO (occurrence: CO)
  Receive Date: 20240611
  Receipt Date: 20240611
  Transmission Date: 20240716
  Serious: Yes (Hospitalization)
  Sender: FDA-Public Use
  Company Number: CO-TAKEDA-2024TUS020700

PATIENT
  Age: 70 Year
  Sex: Male
  Weight: 59.3 kg

DRUGS (3)
  1. VEDOLIZUMAB [Suspect]
     Active Substance: VEDOLIZUMAB
     Indication: Colitis ulcerative
     Dosage: 300 MILLIGRAM
     Route: 042
     Dates: start: 20201013
  2. MESALAMINE [Suspect]
     Active Substance: MESALAMINE
     Indication: Product used for unknown indication
     Dosage: UNK
     Route: 065
  3. AZATHIOPRINE [Concomitant]
     Active Substance: AZATHIOPRINE
     Dosage: UNK

REACTIONS (4)
  - Gastroenteritis [Recovering/Resolving]
  - Pulmonary pain [Unknown]
  - Benign prostatic hyperplasia [Unknown]
  - Weight decreased [Unknown]

NARRATIVE: CASE EVENT DATE: 20240301
